FAERS Safety Report 15720188 (Version 1)
Quarter: 2018Q4

REPORT INFORMATION
  Report Type: Spontaneous
  Country: US (occurrence: US)
  Receive Date: 20181213
  Receipt Date: 20181213
  Transmission Date: 20190205
  Serious: Yes (Other)
  Sender: FDA-Public Use
  Company Number: US-009507513-1812USA004160

PATIENT
  Sex: Female
  Weight: 157 kg

DRUGS (3)
  1. BRIDION [Suspect]
     Active Substance: SUGAMMADEX
     Indication: NEUROMUSCULAR BLOCKADE REVERSAL
     Dosage: 50 MICROGRAM
     Route: 042
  2. BRIDION [Suspect]
     Active Substance: SUGAMMADEX
     Dosage: 50 MICROGRAM (3 CC)
  3. BRIDION [Suspect]
     Active Substance: SUGAMMADEX
     Dosage: 50 MICROGRAM (3 CC)

REACTIONS (1)
  - Bradycardia [Recovered/Resolved]
